FAERS Safety Report 5055432-8 (Version None)
Quarter: 2006Q3

REPORT INFORMATION
  Report Type: 
  Country: None (occurrence: None)
  Receive Date: 20060717
  Receipt Date: 20060717
  Transmission Date: 20061208
  Serious: Yes (Hospitalization)
  Sender: FDA-Public Use
  Company Number: None

PATIENT
  Age: 91 Year
  Sex: Female
  Weight: 59.3 kg

DRUGS (10)
  1. HUMALOG MIX 75/25 [Suspect]
     Indication: DIABETES MELLITUS NON-INSULIN-DEPENDENT
     Dosage: SEE TEXT [CHRONIC]
  2. HUMALOG MIX 75/25 [Concomitant]
  3. INSULIN REGULR HUMAN [Concomitant]
  4. INSULIN -COMPLEX [Concomitant]
  5. MAXZIDE [Concomitant]
  6. ASPIRIN [Concomitant]
  7. DETROL [Concomitant]
  8. TOPROL-XL [Concomitant]
  9. VASOTEC [Concomitant]
  10. CALCITRATE [Concomitant]

REACTIONS (2)
  - BLOOD GLUCOSE DECREASED [None]
  - MENTAL STATUS CHANGES [None]
